FAERS Safety Report 24201916 (Version 2)
Quarter: 2024Q3

REPORT INFORMATION
  Report Type: Spontaneous
  Country: CN (occurrence: CN)
  Receive Date: 20240812
  Receipt Date: 20240814
  Transmission Date: 20241017
  Serious: Yes (Hospitalization)
  Sender: ELI LILLY AND CO
  Company Number: CN-ELI_LILLY_AND_COMPANY-CN202408003650

PATIENT
  Age: 68 Year
  Sex: Male
  Weight: 81 kg

DRUGS (4)
  1. INSULIN HUMAN [Suspect]
     Active Substance: INSULIN HUMAN
     Indication: Type 2 diabetes mellitus
     Dosage: 18 U BEFORE BREAKFAST AND 14 U BEFORE DINNER
     Route: 058
  2. METFORMIN [Concomitant]
     Active Substance: METFORMIN HYDROCHLORIDE
     Indication: Type 2 diabetes mellitus
     Dosage: 1 G, BID
     Route: 065
  3. SITAGLIPTIN [Concomitant]
     Active Substance: SITAGLIPTIN
     Indication: Type 2 diabetes mellitus
     Dosage: 100 MG, DAILY
     Route: 065
  4. NIFEDIPINE [Concomitant]
     Active Substance: NIFEDIPINE
     Indication: Hypertension
     Dosage: 30 MG, DAILY
     Route: 065

REACTIONS (7)
  - Blood glucose increased [Recovered/Resolved]
  - Diabetic neuropathy [Unknown]
  - Diabetic vascular disorder [Unknown]
  - Peripheral arterial occlusive disease [Unknown]
  - Hyperlipidaemia [Unknown]
  - Hepatic steatosis [Unknown]
  - Pancreatic disorder [Unknown]
